FAERS Safety Report 8816485 (Version 1)
Quarter: 2012Q4

REPORT INFORMATION
  Report Type: Spontaneous
  Country: US (occurrence: None)
  Receive Date: 20120927
  Receipt Date: 20120927
  Transmission Date: 20130627
  Serious: Yes (Other)
  Sender: FDA-Public Use
  Company Number: 20120598

PATIENT
  Age: 23 Year
  Sex: Female

DRUGS (3)
  1. BETAMETHASONE SODIUM PHOSPHATE [Suspect]
     Indication: PREMATURE DELIVERY
     Route: 030
  2. INSULIN GLULISINE [Concomitant]
  3. INSULIN SUSPENSION ISOPHANE [Concomitant]

REACTIONS (3)
  - Insulin resistance [None]
  - Diabetes mellitus inadequate control [None]
  - Exposure during pregnancy [None]
